FAERS Safety Report 14980018 (Version 1)
Quarter: 2018Q2

REPORT INFORMATION
  Report Type: Spontaneous
  Country: US (occurrence: US)
  Receive Date: 20180606
  Receipt Date: 20180606
  Transmission Date: 20180711
  Serious: No
  Sender: FDA-Public Use
  Company Number: US-ALLERGAN-1749716US

PATIENT
  Sex: Female

DRUGS (3)
  1. CRINONE [Suspect]
     Active Substance: PROGESTERONE
     Indication: INFERTILITY
     Dosage: UNK
     Route: 067
     Dates: start: 201707
  2. ESTRACE [Concomitant]
     Active Substance: ESTRADIOL
  3. ZYRTEC [Concomitant]
     Active Substance: CETIRIZINE HYDROCHLORIDE

REACTIONS (2)
  - Off label use [Unknown]
  - Exposure during pregnancy [Unknown]
